FAERS Safety Report 6401825-3 (Version None)
Quarter: 2009Q4

REPORT INFORMATION
  Report Type: 
  Country: None (occurrence: None)
  Receive Date: 20091013
  Receipt Date: 20040305
  Transmission Date: 20100525
  Serious: Yes (Death)
  Sender: FDA-Public Use
  Company Number: 2009009099

PATIENT

DRUGS (1)
  1. ACTIQ [Suspect]
     Dosage: BU
     Route: 002

REACTIONS (1)
  - DEATH [None]
